FAERS Safety Report 14479831 (Version 1)
Quarter: 2018Q1

REPORT INFORMATION
  Report Type: Spontaneous
  Country: US (occurrence: US)
  Receive Date: 20180202
  Receipt Date: 20180202
  Transmission Date: 20180509
  Serious: No
  Sender: FDA-Public Use
  Company Number: US-AMGEN-USASP2018014087

PATIENT
  Age: 69 Year
  Sex: Female

DRUGS (3)
  1. CLOBETASOL PROPIONATE E [Concomitant]
     Dosage: UNK
  2. ENBREL [Suspect]
     Active Substance: ETANERCEPT
     Indication: PSORIATIC ARTHROPATHY
     Dosage: 50 MG, QWK
     Route: 058
     Dates: start: 20100101
  3. ENTECAVIR. [Concomitant]
     Active Substance: ENTECAVIR
     Dosage: UNK

REACTIONS (2)
  - Musculoskeletal disorder [Not Recovered/Not Resolved]
  - Arthralgia [Not Recovered/Not Resolved]
